FAERS Safety Report 10509020 (Version 1)
Quarter: 2014Q4

REPORT INFORMATION
  Report Type: Spontaneous
  Country: PT (occurrence: PT)
  Receive Date: 20141009
  Receipt Date: 20141009
  Transmission Date: 20150528
  Serious: Yes (Disabling)
  Sender: FDA-Public Use
  Company Number: ALCN2014PT005601

PATIENT
  Age: 45 Year
  Sex: Female
  Weight: 55 kg

DRUGS (3)
  1. COLIRCUSI FLUOTEST [Suspect]
     Active Substance: BENOXINATE HYDROCHLORIDE\FLUORESCEIN SODIUM
     Indication: OPHTHALMOLOGICAL EXAMINATION
     Dosage: 1 GTT, ONCE/SINGLE (APPLIED BY THE DOCTOR)
     Route: 047
     Dates: start: 20140918, end: 20140918
  2. ISOTRETINOIN ACTAVIS [Concomitant]
     Active Substance: ISOTRETINOIN
     Indication: ACNE
     Dosage: 10 MG, TIW (ADMINISTERED ON MONDAYS, WEDNESDAY AND FRIDAY)
     Route: 048
     Dates: start: 20140917
  3. FOLICIL [Concomitant]
     Active Substance: FOLIC ACID
     Dosage: 5 MG, QD
     Route: 048
     Dates: start: 20140917

REACTIONS (2)
  - Visual impairment [Recovered/Resolved]
  - Vision blurred [Recovered/Resolved]

NARRATIVE: CASE EVENT DATE: 20140918
